FAERS Safety Report 6660553-X (Version None)
Quarter: 2010Q1

REPORT INFORMATION
  Report Type: 
  Country: None (occurrence: None)
  Receive Date: 20100331
  Receipt Date: 20100331
  Transmission Date: 20100710
  Serious: Yes (Hospitalization)
  Sender: FDA-Public Use
  Company Number: PHHO2007HK06700

PATIENT
  Sex: Female
  Weight: 46.8 kg

DRUGS (3)
  1. ACLASTA/ZOLEDRONATE T29581+A+SOLINJ [Suspect]
     Indication: OSTEOPOROSIS POSTMENOPAUSAL
     Dosage: 5 MG ONCE A YEAR
     Route: 042
     Dates: start: 20060731
  2. CALTRATE +D [Concomitant]
     Indication: OSTEOPOROSIS POSTMENOPAUSAL
  3. INDAPAMIDE [Concomitant]
     Indication: HYPERTENSION
     Dosage: 2.5 MG, QD
     Route: 048
     Dates: start: 20030101, end: 20070312

REACTIONS (7)
  - ABDOMINAL PAIN [None]
  - ABDOMINAL REBOUND TENDERNESS [None]
  - ABDOMINAL TENDERNESS [None]
  - APPENDICECTOMY [None]
  - APPENDICITIS [None]
  - HYPOTENSION [None]
  - PYREXIA [None]
